FAERS Safety Report 9105088 (Version 2)
Quarter: 2013Q1

REPORT INFORMATION
  Report Type: Spontaneous
  Country: CA (occurrence: CA)
  Receive Date: 20130219
  Receipt Date: 20130325
  Transmission Date: 20140127
  Serious: Yes (Life-Threatening, Hospitalization)
  Sender: FDA-Public Use
  Company Number: CA-ASTRAZENECA-2013SE10637

PATIENT
  Sex: Male

DRUGS (5)
  1. BRILINTA [Suspect]
     Route: 048
  2. BRILINTA [Suspect]
     Route: 048
  3. ACETYLSALICYLIC ACID [Suspect]
     Indication: MYOCARDIAL INFARCTION
     Route: 048
  4. INTEGRILIN [Suspect]
     Route: 065
  5. HEPARIN [Suspect]
     Route: 042

REACTIONS (2)
  - Thrombosis in device [Recovered/Resolved]
  - Myocardial infarction [Recovered/Resolved]
